FAERS Safety Report 10542724 (Version 1)
Quarter: 2014Q4

REPORT INFORMATION
  Report Type: Spontaneous
  Country: US (occurrence: None)
  Receive Date: 20141024
  Receipt Date: 20141024
  Transmission Date: 20150529
  Serious: Yes (Disabling)
  Sender: FDA-Public Use
  Company Number: None

PATIENT
  Age: 44 Year
  Sex: Female
  Weight: 63.5 kg

DRUGS (1)
  1. RISPERDAL [Suspect]
     Active Substance: RISPERIDONE
     Indication: PSYCHOTIC DISORDER
     Dosage: 1/2 HALF PILLS, TAKEN BY MOUTH
     Dates: start: 20080828, end: 20130315

REACTIONS (13)
  - Musculoskeletal stiffness [None]
  - Gait disturbance [None]
  - Anxiety [None]
  - Quality of life decreased [None]
  - Walking aid user [None]
  - Stress [None]
  - Depression [None]
  - Muscle disorder [None]
  - Tremor [None]
  - Impaired work ability [None]
  - Parkinsonism [None]
  - Frustration [None]
  - Physical disability [None]

NARRATIVE: CASE EVENT DATE: 20141022
